FAERS Safety Report 10538044 (Version 2)
Quarter: 2015Q1

REPORT INFORMATION
  Report Type: Report from Study
  Country: FI (occurrence: FI)
  Receive Date: 20141023
  Receipt Date: 20150205
  Transmission Date: 20150720
  Serious: Yes (Other)
  Sender: FDA-Public Use
  Company Number: FI-RECKITT BENCKISER PHARMACEUTICAL, INC-RB-72639-2014

PATIENT
  Age: 30 Year
  Sex: Male

DRUGS (3)
  1. MORPHINE/OPIUM [Suspect]
     Active Substance: MORPHINE
     Indication: PRODUCT USED FOR UNKNOWN INDICATION
     Dosage: LESS THAN ONCE A WEEK, FROM PAST 15 YEARS
     Route: 065
  2. SUBOXONE [Suspect]
     Active Substance: BUPRENORPHINE HYDROCHLORIDE\NALOXONE HYDROCHLORIDE
     Indication: DRUG DEPENDENCE
     Dosage: UNK
     Route: 065
  3. SUBUTEX [Suspect]
     Active Substance: BUPRENORPHINE HYDROCHLORIDE
     Indication: DRUG DEPENDENCE
     Dosage: CURRENTLY USING EVERY DAY, FROM PAST 5 YEARS
     Route: 051

REACTIONS (3)
  - Hepatitis C [Unknown]
  - Intentional product misuse [Not Recovered/Not Resolved]
  - Substance abuse [Not Recovered/Not Resolved]
